FAERS Safety Report 18323465 (Version 1)
Quarter: 2020Q3

REPORT INFORMATION
  Report Type: Spontaneous
  Country: FR (occurrence: FR)
  Receive Date: 20200928
  Receipt Date: 20200928
  Transmission Date: 20201103
  Serious: Yes (Other)
  Sender: FDA-Public Use
  Company Number: FR-PFIZER INC-2020371585

PATIENT
  Age: 22 Year
  Sex: Female
  Weight: 120 kg

DRUGS (2)
  1. STILNOX [Suspect]
     Active Substance: ZOLPIDEM TARTRATE
     Dosage: 1 DF, AS NEEDED
     Route: 048
     Dates: start: 2014
  2. XANAX [Suspect]
     Active Substance: ALPRAZOLAM
     Dosage: 1 DF, AS NEEDED
     Route: 048
     Dates: start: 2014

REACTIONS (1)
  - Drug use disorder [Not Recovered/Not Resolved]

NARRATIVE: CASE EVENT DATE: 2014
